FAERS Safety Report 7767519-7 (Version None)
Quarter: 2011Q3

REPORT INFORMATION
  Report Type: 
  Country: None (occurrence: None)
  Receive Date: 20110922
  Receipt Date: 20110914
  Transmission Date: 20111222
  Serious: Yes (Death, Hospitalization)
  Sender: FDA-Public Use
  Company Number: JP-JNJFOC-20110208181

PATIENT
  Sex: Female
  Weight: 42 kg

DRUGS (9)
  1. DOXORUBICIN HCL [Suspect]
     Indication: OVARIAN CANCER RECURRENT
     Dosage: CYCLE 2
     Route: 042
     Dates: start: 20090713, end: 20090713
  2. VOLTAREN [Concomitant]
     Indication: OVARIAN CANCER RECURRENT
     Route: 048
  3. GABAPENTIN [Concomitant]
     Indication: OVARIAN CANCER RECURRENT
     Route: 048
     Dates: start: 20090727, end: 20090809
  4. LACTATED RINGER'S [Concomitant]
     Indication: MALAISE
     Route: 041
     Dates: start: 20090810, end: 20090813
  5. MUCOSTA [Concomitant]
     Indication: OVARIAN CANCER RECURRENT
     Route: 048
  6. DOXORUBICIN HCL [Suspect]
     Dosage: CYCLE 1
     Route: 042
     Dates: start: 20090615, end: 20090615
  7. GRAN [Concomitant]
     Indication: NEUTROPHIL COUNT DECREASED
     Route: 058
     Dates: start: 20090810, end: 20090813
  8. POTASSIUM CHLORIDE [Concomitant]
     Indication: MALAISE
     Route: 041
     Dates: start: 20090711, end: 20090812
  9. FLUMARIN [Concomitant]
     Indication: PROPHYLAXIS
     Route: 041
     Dates: start: 20090810, end: 20090814

REACTIONS (3)
  - NEUTROPENIA [None]
  - MALAISE [None]
  - OVARIAN CANCER [None]
